FAERS Safety Report 20365487 (Version 3)
Quarter: 2022Q1

REPORT INFORMATION
  Report Type: Report from Study
  Country: MX (occurrence: MX)
  Receive Date: 20220122
  Receipt Date: 20220202
  Transmission Date: 20220423
  Serious: No
  Sender: FDA-Public Use
  Company Number: MX-NOVARTISPH-NVSC2022MX013936

PATIENT
  Age: 43 Year
  Sex: Male
  Weight: 105 kg

DRUGS (4)
  1. ELTROMBOPAG OLAMINE [Suspect]
     Active Substance: ELTROMBOPAG OLAMINE
     Indication: Myelodysplastic syndrome
     Dosage: 50 MG, QD (EVERY 24 HOURS) (2)
     Route: 048
     Dates: start: 20211120
  2. THYMOGLOBULIN [Concomitant]
     Active Substance: LAPINE T-LYMPHOCYTE IMMUNE GLOBULIN
     Indication: Fracture reduction
     Dosage: UNK
     Route: 042
     Dates: start: 20211231, end: 20220105
  3. METFORMIN [Concomitant]
     Active Substance: METFORMIN HYDROCHLORIDE
     Indication: Diabetes mellitus
     Dosage: 850 MG, BID
     Route: 048
     Dates: start: 20220112
  4. CYCLOSPORINE [Concomitant]
     Active Substance: CYCLOSPORINE
     Indication: Product used for unknown indication
     Dosage: UNK, BID
     Route: 065
     Dates: start: 20220112

REACTIONS (4)
  - Abdominal pain upper [Recovering/Resolving]
  - Gastritis [Recovering/Resolving]
  - Flatulence [Recovering/Resolving]
  - Product use in unapproved indication [Unknown]

NARRATIVE: CASE EVENT DATE: 20211120
